FAERS Safety Report 24377120 (Version 1)
Quarter: 2024Q3

REPORT INFORMATION
  Report Type: Report from Study
  Country: US (occurrence: US)
  Receive Date: 20240930
  Receipt Date: 20240930
  Transmission Date: 20241017
  Serious: Yes (Death)
  Sender: JOHNSON AND JOHNSON
  Company Number: US-JNJFOC-20240964328

PATIENT
  Age: 54 Year
  Sex: Female

DRUGS (1)
  1. CILTACABTAGENE AUTOLEUCEL [Suspect]
     Active Substance: CILTACABTAGENE AUTOLEUCEL
     Indication: Plasma cell myeloma
     Dosage: 53.28*10^8 CAR-T CELLS
     Route: 065
     Dates: start: 2023

REACTIONS (6)
  - Fungal infection [Fatal]
  - Multiple organ dysfunction syndrome [Fatal]
  - Respiratory failure [Fatal]
  - Renal failure [Fatal]
  - Atrial fibrillation [Fatal]
  - Plasma cell myeloma [Fatal]
